FAERS Safety Report 6089331-X (Version None)
Quarter: 2009Q1

REPORT INFORMATION
  Report Type: 
  Country: None (occurrence: None)
  Receive Date: 20090224
  Receipt Date: 20090216
  Transmission Date: 20090719
  Serious: Yes (Other)
  Sender: FDA-Public Use
  Company Number: PHEH2009US01757

PATIENT
  Age: 61 Year
  Sex: Female

DRUGS (8)
  1. FEMARA [Suspect]
     Indication: BREAST CANCER
     Dosage: 2.5 MG, QD
     Route: 048
     Dates: start: 20080108
  2. SYNTHROID [Suspect]
     Dosage: UNK
  3. LIPITOR [Suspect]
     Dosage: UNK
  4. LEXAPRO [Suspect]
     Dosage: UNK
  5. CALCIUM [Suspect]
     Dosage: UNK
  6. NEURONTIN [Suspect]
     Dosage: UNK
     Dates: start: 20080401
  7. ANTIDEPRESSANTS [Suspect]
     Dosage: UNK
     Dates: start: 20080401
  8. HORMONES NOS [Suspect]

REACTIONS (3)
  - CONSTIPATION [None]
  - LABORATORY TEST ABNORMAL [None]
  - RENAL IMPAIRMENT [None]
